FAERS Safety Report 9867482 (Version 2)
Quarter: 2014Q1

REPORT INFORMATION
  Report Type: Spontaneous
  Country: BR (occurrence: BR)
  Receive Date: 20140204
  Receipt Date: 20140210
  Transmission Date: 20141002
  Serious: Yes (Other)
  Sender: FDA-Public Use
  Company Number: BR-PFIZER INC-2014029169

PATIENT
  Age: 50 Year
  Sex: Female
  Weight: 84 kg

DRUGS (5)
  1. PRISTIQ [Suspect]
     Indication: PANIC DISORDER
     Dosage: 50 MG, UNK
  2. PRISTIQ [Suspect]
     Indication: DEPRESSION
     Dosage: 100 MG, UNK
  3. FRONTAL [Concomitant]
     Indication: PANIC DISORDER
     Dosage: 3MG DAILY (IN THE MORNING, IN THE AFTERNOON AND AT NIGHT)
  4. FRONTAL [Concomitant]
     Indication: DEPRESSION
     Dosage: 2 MG, UNK
  5. FRONTAL [Concomitant]
     Dosage: REACH 4 MG IF SHE FELT A LOT OF ANXIETY

REACTIONS (6)
  - Bipolar disorder [Unknown]
  - Euphoric mood [Unknown]
  - Anxiety [Unknown]
  - Speech disorder [Unknown]
  - Tachycardia [Unknown]
  - Off label use [Unknown]
